FAERS Safety Report 18677633 (Version 1)
Quarter: 2020Q4

REPORT INFORMATION
  Report Type: Report from Study
  Country: US (occurrence: US)
  Receive Date: 20201229
  Receipt Date: 20201229
  Transmission Date: 20210114
  Serious: Yes (Death, Hospitalization, Other)
  Sender: FDA-Public Use
  Company Number: NVSC2020US331014

PATIENT
  Age: 75 Year
  Sex: Female
  Weight: 37.64 kg

DRUGS (1)
  1. LAMPRENE [Suspect]
     Active Substance: CLOFAZIMINE
     Indication: MYCOBACTERIUM AVIUM COMPLEX INFECTION
     Dosage: 50 G
     Route: 048
     Dates: start: 20190226, end: 20201026

REACTIONS (10)
  - Hyperkalaemia [Unknown]
  - Small intestinal obstruction [Fatal]
  - Dyspnoea [Fatal]
  - Mycobacterium avium complex infection [Unknown]
  - Disease progression [Unknown]
  - Failure to thrive [Unknown]
  - Malnutrition [Unknown]
  - Faecal vomiting [Fatal]
  - Respiratory failure [Unknown]
  - Nausea [Unknown]

NARRATIVE: CASE EVENT DATE: 20201025
